FAERS Safety Report 6196387-2 (Version None)
Quarter: 2009Q2

REPORT INFORMATION
  Report Type: 
  Country: None (occurrence: None)
  Receive Date: 20090518
  Receipt Date: 20090518
  Transmission Date: 20091009
  Serious: Yes (Hospitalization)
  Sender: FDA-Public Use
  Company Number: None

PATIENT
  Sex: Male
  Weight: 89.4 kg

DRUGS (2)
  1. CISPLATIN [Suspect]
     Dosage: 232 MG
     Dates: end: 20090504
  2. TAXOL [Suspect]
     Dosage: 463 MG
     Dates: end: 20090505

REACTIONS (2)
  - DEHYDRATION [None]
  - OESOPHAGITIS [None]
